FAERS Safety Report 9959657 (Version 2)
Quarter: 2014Q1

REPORT INFORMATION
  Report Type: Spontaneous
  Country: IT (occurrence: None)
  Receive Date: 20140227
  Receipt Date: 20140227
  Transmission Date: 20141002
  Serious: No
  Sender: FDA-Public Use
  Company Number: B0972206A

PATIENT
  Age: 80 Year
  Sex: Female

DRUGS (2)
  1. NADROPARINE CALCIUM [Suspect]
     Indication: PROPHYLAXIS
     Dates: start: 20120914
  2. FONDAPARINUX SODIUM [Suspect]
     Indication: THROMBOSIS
     Dates: start: 201209

REACTIONS (4)
  - Off label use [None]
  - Heparin-induced thrombocytopenia [None]
  - Thrombosis [None]
  - Deep vein thrombosis [None]
